FAERS Safety Report 6086953-7 (Version None)
Quarter: 2009Q1

REPORT INFORMATION
  Report Type: 
  Country: None (occurrence: None)
  Receive Date: 20090223
  Receipt Date: 20090212
  Transmission Date: 20090719
  Serious: Yes (Death)
  Sender: FDA-Public Use
  Company Number: US-ROCHE-614331

PATIENT
  Sex: Male
  Weight: 72.6 kg

DRUGS (1)
  1. CAPECITABINE [Suspect]
     Indication: DRUG USE FOR UNKNOWN INDICATION
     Dosage: DOSE REPORTED AS: 2 TABLETS DAILY, INDICATION REPORTED AS OTHER
     Route: 065
     Dates: start: 20090101

REACTIONS (1)
  - DEATH [None]
